FAERS Safety Report 8983101 (Version 1)
Quarter: 2012Q4

REPORT INFORMATION
  Report Type: 
  Country: US (occurrence: US)
  Receive Date: 20121223
  Receipt Date: 20121223
  Transmission Date: 20130627
  Serious: Yes (Hospitalization, Other)
  Sender: FDA-Public Use
  Company Number: US-AMGEN-USASP2012082331

PATIENT
  Age: 70 Year
  Sex: Male

DRUGS (8)
  1. VINCRISTINE [Concomitant]
     Indication: NON-HODGKIN^S LYMPHOMA
     Dosage: UNK
     Dates: start: 201208
  2. OXYCODONE [Concomitant]
     Dosage: UNK
  3. ANALGESICS [Concomitant]
     Dosage: UNK
  4. NEULASTA [Suspect]
     Indication: PRODUCT USED FOR UNKNOWN INDICATION
     Dosage: 6 mg, UNK
     Route: 065
     Dates: start: 201208, end: 20121020
  5. RITUXIMAB [Concomitant]
     Indication: NON-HODGKIN^S LYMPHOMA
     Dosage: UNK
     Dates: start: 201208
  6. CYCLOPHOSPHAMIDE [Concomitant]
     Indication: NON-HODGKIN^S LYMPHOMA
     Dosage: UNK
     Dates: start: 201208
  7. ETOPOSIDE [Concomitant]
     Indication: NON-HODGKIN^S LYMPHOMA
     Dosage: UNK
     Dates: start: 201208
  8. PREDNISONE [Concomitant]
     Indication: NON-HODGKIN^S LYMPHOMA
     Dosage: UNK
     Dates: start: 201208

REACTIONS (9)
  - Dementia [Not Recovered/Not Resolved]
  - Unresponsive to stimuli [Not Recovered/Not Resolved]
  - Pain in extremity [Unknown]
  - Lymphoma [Not Recovered/Not Resolved]
  - Pneumonia [Unknown]
  - Abasia [Unknown]
  - Asthenia [Unknown]
  - Aphagia [Unknown]
  - Bone pain [Unknown]
